FAERS Safety Report 5016180-3 (Version None)
Quarter: 2006Q2

REPORT INFORMATION
  Report Type: 
  Country: None (occurrence: None)
  Receive Date: 20060601
  Receipt Date: 20060522
  Transmission Date: 20061013
  Serious: Yes (Other)
  Sender: FDA-Public Use
  Company Number: GB-MERCK-0605GBR00105

PATIENT
  Sex: Male

DRUGS (4)
  1. PRIMAXIN [Suspect]
     Indication: FEBRILE NEUTROPENIA
     Route: 042
     Dates: start: 20060215, end: 20060217
  2. CYCLOSPORINE [Concomitant]
     Route: 042
     Dates: start: 20060209
  3. CYCLIZINE [Concomitant]
     Route: 042
     Dates: start: 20060209
  4. GENTAMICIN [Concomitant]
     Route: 042
     Dates: start: 20060211, end: 20060217

REACTIONS (1)
  - MYOSITIS-LIKE SYNDROME [None]
